FAERS Safety Report 12323830 (Version 1)
Quarter: 2016Q2

REPORT INFORMATION
  Report Type: Report from Study
  Country: US (occurrence: US)
  Receive Date: 20160502
  Receipt Date: 20160502
  Transmission Date: 20160815
  Serious: Yes (Hospitalization)
  Sender: FDA-Public Use
  Company Number: US-BIOGEN-2008BI013770

PATIENT
  Age: 52 Year
  Sex: Female
  Weight: 79 kg

DRUGS (5)
  1. AVONEX [Suspect]
     Active Substance: INTERFERON BETA-1A
     Route: 030
     Dates: start: 20070916, end: 20100301
  2. AVONEX [Suspect]
     Active Substance: INTERFERON BETA-1A
     Route: 030
     Dates: start: 20140211, end: 20150815
  3. AVONEX [Suspect]
     Active Substance: INTERFERON BETA-1A
     Route: 030
     Dates: start: 200410, end: 200712
  4. AVONEX [Suspect]
     Active Substance: INTERFERON BETA-1A
     Indication: MULTIPLE SCLEROSIS
     Route: 030
     Dates: start: 19990611, end: 200410
  5. AVONEX [Suspect]
     Active Substance: INTERFERON BETA-1A
     Route: 030
     Dates: start: 19990611, end: 20070508

REACTIONS (13)
  - Drug intolerance [Unknown]
  - Goitre [Recovered/Resolved]
  - General symptom [Recovered/Resolved]
  - Thyroid function test abnormal [Recovered/Resolved]
  - Tremor [Unknown]
  - Neuropathy peripheral [Unknown]
  - Influenza like illness [Recovered/Resolved]
  - Benign neoplasm of thyroid gland [Recovered/Resolved]
  - Thyroid disorder [Recovered/Resolved]
  - Influenza [Recovered/Resolved]
  - Arthralgia [Recovered/Resolved]
  - Vocal cord polyp [Not Recovered/Not Resolved]
  - Burning sensation [Unknown]

NARRATIVE: CASE EVENT DATE: 1999
